FAERS Safety Report 11027994 (Version 2)
Quarter: 2015Q2

REPORT INFORMATION
  Report Type: Spontaneous
  Country: US (occurrence: US)
  Receive Date: 20150414
  Receipt Date: 20150525
  Transmission Date: 20150821
  Serious: No
  Sender: FDA-Public Use
  Company Number: US-JNJFOC-20130802139

PATIENT
  Age: 28 Year
  Sex: Female
  Weight: 58.97 kg

DRUGS (5)
  1. VITAMIN B12 [Concomitant]
     Active Substance: CYANOCOBALAMIN
     Indication: NUTRITIONAL SUPPLEMENTATION
     Route: 048
     Dates: start: 2013
  2. VITAMIN B2 [Concomitant]
     Active Substance: RIBOFLAVIN
     Indication: NUTRITIONAL SUPPLEMENTATION
     Route: 048
     Dates: start: 2013
  3. ORTHO TRI CYCLEN LO [Suspect]
     Active Substance: ETHINYL ESTRADIOL\NORGESTIMATE
     Indication: HORMONE LEVEL ABNORMAL
     Dosage: 3 OR 4 MONTHS AGO
     Route: 048
     Dates: start: 2013
  4. DOCUSATE SODIUM. [Concomitant]
     Active Substance: DOCUSATE SODIUM
     Indication: CONSTIPATION
     Route: 048
     Dates: start: 2013
  5. ORTHO TRI CYCLEN LO [Suspect]
     Active Substance: ETHINYL ESTRADIOL\NORGESTIMATE
     Indication: DYSMENORRHOEA
     Dosage: 3 OR 4 MONTHS AGO
     Route: 048
     Dates: start: 2013

REACTIONS (4)
  - Product use issue [Recovered/Resolved]
  - Therapeutic response unexpected [Recovered/Resolved]
  - Inappropriate schedule of drug administration [Recovered/Resolved]
  - Breast pain [Not Recovered/Not Resolved]

NARRATIVE: CASE EVENT DATE: 2013
